FAERS Safety Report 6970686-6 (Version None)
Quarter: 2010Q3

REPORT INFORMATION
  Report Type: 
  Country: None (occurrence: None)
  Receive Date: 20100908
  Receipt Date: 20100831
  Transmission Date: 20110219
  Serious: Yes (Other)
  Sender: FDA-Public Use
  Company Number: US-PFIZER INC-2010110410

PATIENT

DRUGS (1)
  1. SUNITINIB MALATE [Suspect]
     Dosage: UNK

REACTIONS (1)
  - THROMBOCYTOPENIA [None]
